FAERS Safety Report 10738226 (Version 1)
Quarter: 2015Q1

REPORT INFORMATION
  Report Type: Spontaneous
  Country: JP (occurrence: JP)
  Receive Date: 20150126
  Receipt Date: 20150126
  Transmission Date: 20150721
  Serious: Yes (Other)
  Sender: FDA-Public Use
  Company Number: JP-MYLANLABS-2015M1000818

PATIENT
  Age: 48 Year
  Sex: Female
  Weight: 49 kg

DRUGS (5)
  1. TRASTUZUMAB [Suspect]
     Active Substance: TRASTUZUMAB
     Indication: BREAST CANCER
     Dosage: 16 COURSE
     Route: 041
  2. EPIRUBICIN HYDROCHLORIDE INJECTION 10MG/5ML ^MYLAN^ [Suspect]
     Active Substance: EPIRUBICIN HYDROCHLORIDE
     Indication: BREAST CANCER
     Dosage: TOTAL 6 COURSE
     Route: 041
  3. ENDOXAN                            /00021101/ [Suspect]
     Active Substance: CYCLOPHOSPHAMIDE
     Indication: BREAST CANCER
     Dosage: TOTAL 6 COURSE
     Route: 065
  4. TRASTUZUMAB [Suspect]
     Active Substance: TRASTUZUMAB
     Dosage: 17 COURSE
     Route: 041
  5. FLUOROURACIL. [Suspect]
     Active Substance: FLUOROURACIL
     Indication: BREAST CANCER
     Dosage: TOTAL 6 COURSE
     Route: 065

REACTIONS (1)
  - Cardiac failure [Recovered/Resolved]
